FAERS Safety Report 16916820 (Version 2)
Quarter: 2019Q4

REPORT INFORMATION
  Report Type: Report from Study
  Country: None (occurrence: US)
  Receive Date: 20191015
  Receipt Date: 20191024
  Transmission Date: 20200122
  Serious: Yes (Other)
  Sender: FDA-Public Use
  Company Number: US-ABBVIE-19K-163-2935745-00

PATIENT
  Age: 25 Year
  Sex: Female
  Weight: 104.87 kg

DRUGS (3)
  1. SULFASALAZINE. [Concomitant]
     Active Substance: SULFASALAZINE
     Indication: COLITIS
  2. HUMIRA [Suspect]
     Active Substance: ADALIMUMAB
     Indication: COLITIS ULCERATIVE
     Route: 058
     Dates: start: 201809
  3. HUMIRA [Suspect]
     Active Substance: ADALIMUMAB
     Route: 058

REACTIONS (9)
  - Fear of injection [Unknown]
  - Drug ineffective [Unknown]
  - Injection site papule [Recovered/Resolved with Sequelae]
  - Large intestine polyp [Recovered/Resolved]
  - Colitis [Not Recovered/Not Resolved]
  - Injection site discomfort [Recovered/Resolved with Sequelae]
  - Incorrect dose administered [Unknown]
  - Injection site haemorrhage [Unknown]
  - Device issue [Unknown]

NARRATIVE: CASE EVENT DATE: 201906
